FAERS Safety Report 6302964 (Version 4)
Quarter: 2017Q3

REPORT INFORMATION
  Report Type: Spontaneous
  Country: US (occurrence: US)
  Receive Date: 20061012
  Receipt Date: 20170925
  Transmission Date: 20171128
  Serious: Yes (Hospitalization, Other)
  Sender: FDA-Public Use
  Company Number: US-PFIZER INC-2006122890

PATIENT
  Age: 49 Year
  Sex: Female
  Weight: 64 kg

DRUGS (7)
  1. IBUPROFEN. [Concomitant]
     Active Substance: IBUPROFEN
     Indication: PAIN MANAGEMENT
     Dosage: UNK
     Dates: start: 19911211
  2. CELEBREX [Suspect]
     Active Substance: CELECOXIB
     Indication: OSTEOARTHRITIS
     Dosage: 200 MG, 1X/DAY
     Route: 048
  3. VIOXX [Suspect]
     Active Substance: ROFECOXIB
     Indication: ARTHRITIS
     Dosage: 25 MG, 1X/DAY
     Route: 048
     Dates: start: 200307, end: 200402
  4. VIOXX [Suspect]
     Active Substance: ROFECOXIB
     Dosage: 13 MG, 1X/DAY
     Route: 048
     Dates: start: 20030701, end: 20040201
  5. BEXTRA [Suspect]
     Active Substance: VALDECOXIB
     Indication: OSTEOARTHRITIS
     Dosage: 10 MG, 1X/DAY
     Route: 048
     Dates: end: 200406
  6. VIOXX [Suspect]
     Active Substance: ROFECOXIB
     Indication: PAIN MANAGEMENT
     Dosage: 12 MG, 1X/DAY
     Route: 048
     Dates: start: 200307, end: 200402
  7. FLEXERIL [Concomitant]
     Active Substance: CYCLOBENZAPRINE HYDROCHLORIDE
     Indication: PAIN MANAGEMENT
     Dosage: UNK

REACTIONS (1)
  - Ischaemic stroke [Unknown]

NARRATIVE: CASE EVENT DATE: 20040108
